FAERS Safety Report 19473695 (Version 2)
Quarter: 2022Q2

REPORT INFORMATION
  Report Type: Spontaneous
  Country: US (occurrence: US)
  Receive Date: 20210629
  Receipt Date: 20220412
  Transmission Date: 20220721
  Serious: No
  Sender: FDA-Public Use
  Company Number: US-ASTELLAS-2021US014206

PATIENT
  Sex: Female

DRUGS (2)
  1. XOSPATA [Interacting]
     Active Substance: GILTERITINIB
     Indication: Post procedural complication
     Dosage: UNK UNK, UNKNOWN FREQ.
     Route: 065
  2. TACROLIMUS [Interacting]
     Active Substance: TACROLIMUS
     Indication: Graft versus host disease
     Dosage: UNK UNK, UNKNOWN FREQ.
     Route: 065

REACTIONS (3)
  - Immunosuppressant drug level decreased [Unknown]
  - Drug interaction [Unknown]
  - Product use in unapproved indication [Unknown]
